FAERS Safety Report 24433355 (Version 1)
Quarter: 2024Q4

REPORT INFORMATION
  Report Type: Spontaneous
  Country: FR (occurrence: FR)
  Receive Date: 20241014
  Receipt Date: 20241014
  Transmission Date: 20250115
  Serious: Yes (Life-Threatening)
  Sender: WAYLIS
  Company Number: None

PATIENT
  Age: 50 Year
  Sex: Female
  Weight: 66 kg

DRUGS (7)
  1. VALIUM [Suspect]
     Active Substance: DIAZEPAM
     Indication: Psychotic disorder
     Route: 050
     Dates: start: 20240906, end: 20240912
  2. VALIUM [Suspect]
     Active Substance: DIAZEPAM
     Dosage: 30MG
     Route: 050
     Dates: start: 20240831, end: 20240906
  3. RISPERIDONE [Suspect]
     Active Substance: RISPERIDONE
     Indication: Psychotic disorder
     Route: 050
     Dates: start: 20240917
  4. RISPERIDONE [Suspect]
     Active Substance: RISPERIDONE
     Route: 050
     Dates: start: 20240831, end: 20240905
  5. RISPERIDONE [Suspect]
     Active Substance: RISPERIDONE
     Route: 050
     Dates: start: 20240906, end: 20240912
  6. VALPROATE SODIUM [Suspect]
     Active Substance: VALPROATE SODIUM
     Indication: Psychotic disorder
     Route: 050
     Dates: start: 20240906, end: 20240912
  7. LEVOMEPROMAZINE [Suspect]
     Active Substance: LEVOMEPROMAZINE
     Indication: Psychotic disorder
     Route: 050
     Dates: start: 20240906, end: 20240912

REACTIONS (3)
  - Hypoglycaemia [Recovered/Resolved]
  - Hypothermia [Recovered/Resolved]
  - Coma [Recovering/Resolving]

NARRATIVE: CASE EVENT DATE: 20240912
